FAERS Safety Report 12563461 (Version 1)
Quarter: 2016Q3

REPORT INFORMATION
  Report Type: Spontaneous
  Country: US (occurrence: US)
  Receive Date: 20160715
  Receipt Date: 20160715
  Transmission Date: 20161109
  Serious: No
  Sender: FDA-Public Use
  Company Number: US-GLAXOSMITHKLINE-US2016101196

PATIENT
  Sex: Female

DRUGS (2)
  1. FLONASE [Suspect]
     Active Substance: FLUTICASONE PROPIONATE
     Dosage: UNK UNK, BID, USED IT TWICE
     Dates: start: 20160712
  2. FLONASE [Suspect]
     Active Substance: FLUTICASONE PROPIONATE
     Indication: PRODUCT USED FOR UNKNOWN INDICATION
     Dosage: UNK, SINGLE, USED IT ONCE
     Dates: start: 20160711

REACTIONS (3)
  - Product quality issue [Unknown]
  - Incorrect dosage administered [Unknown]
  - Drug ineffective [Unknown]
